FAERS Safety Report 23763632 (Version 1)
Quarter: 2024Q2

REPORT INFORMATION
  Report Type: Spontaneous
  Country: RO (occurrence: RO)
  Receive Date: 20240419
  Receipt Date: 20240419
  Transmission Date: 20240716
  Serious: Yes (Hospitalization)
  Sender: FDA-Public Use
  Company Number: RO-TEVA-VS-3183944

PATIENT
  Age: 43 Year
  Sex: Female

DRUGS (1)
  1. COPAXONE [Suspect]
     Active Substance: GLATIRAMER ACETATE
     Dosage: TIME INTERVAL: 0.33333333 WEEKS: DOSAGE: 40 MG/ML
     Route: 065
     Dates: start: 201801

REACTIONS (7)
  - Depression [Unknown]
  - Affective disorder [Unknown]
  - Sleep disorder [Unknown]
  - Rash [Unknown]
  - Flushing [Unknown]
  - Drug hypersensitivity [Unknown]
  - Malaise [Unknown]
